FAERS Safety Report 14721337 (Version 1)
Quarter: 2018Q2

REPORT INFORMATION
  Report Type: Spontaneous
  Country: AR (occurrence: AR)
  Receive Date: 20180405
  Receipt Date: 20180405
  Transmission Date: 20180711
  Serious: Yes (Death)
  Sender: FDA-Public Use
  Company Number: AR-PFIZER INC-2018138787

PATIENT
  Age: 66 Year
  Sex: Female

DRUGS (1)
  1. INLYTA [Suspect]
     Active Substance: AXITINIB
     Indication: RENAL CELL CARCINOMA
     Dosage: 1 MG, DAILY
     Dates: start: 20170628

REACTIONS (1)
  - Death [Fatal]

NARRATIVE: CASE EVENT DATE: 20180330
